FAERS Safety Report 5838057-3 (Version None)
Quarter: 2008Q3

REPORT INFORMATION
  Report Type: 
  Country: None (occurrence: None)
  Receive Date: 20080808
  Receipt Date: 20080411
  Transmission Date: 20090109
  Serious: No
  Sender: FDA-Public Use
  Company Number: A0723895A

PATIENT
  Sex: Male

DRUGS (2)
  1. PAXIL [Suspect]
     Indication: DRUG USE FOR UNKNOWN INDICATION
     Route: 048
     Dates: start: 20000801
  2. UNKNOWN [Concomitant]

REACTIONS (3)
  - ADVERSE DRUG REACTION [None]
  - ILLUSION [None]
  - LABORATORY TEST ABNORMAL [None]
